FAERS Safety Report 8869337 (Version 1)
Quarter: 2012Q4

REPORT INFORMATION
  Report Type: Spontaneous
  Country: US (occurrence: None)
  Receive Date: 20121025
  Receipt Date: 20121025
  Transmission Date: 20130627
  Serious: No
  Sender: FDA-Public Use
  Company Number: None

PATIENT
  Age: 59 Year
  Sex: Female

DRUGS (1)
  1. BOSULIF [Suspect]
     Dosage: 500mg daily po
     Route: 048
     Dates: start: 20121008, end: 20121012

REACTIONS (1)
  - Diarrhoea [None]
